APPROVED DRUG PRODUCT: LYNKUET
Active Ingredient: ELINZANETANT
Strength: 60MG
Dosage Form/Route: CAPSULE;ORAL
Application: N219469 | Product #001
Applicant: BAYER HEALTHCARE PHARMACEUTICALS INC
Approved: Oct 24, 2025 | RLD: Yes | RS: Yes | Type: RX

PATENTS:
Patent 12264164 | Expires: Mar 13, 2039
Patent 11787820 | Expires: Mar 13, 2039
Patent 10195205 | Expires: May 18, 2036
Patent 12533358 | Expires: May 14, 2045
Patent 7683056 | Expires: Sep 15, 2026
Patent 10774091 | Expires: Mar 13, 2039

EXCLUSIVITY:
Code: NCE | Date: Oct 24, 2030